FAERS Safety Report 26206198 (Version 1)
Quarter: 2025Q4

REPORT INFORMATION
  Report Type: Report from Study
  Country: GB (occurrence: None)
  Receive Date: 20251229
  Receipt Date: 20251229
  Transmission Date: 20260118
  Serious: Yes (Other)
  Sender: UCB
  Company Number: GB-UCBSA-2025081733

PATIENT
  Age: 44 Year

DRUGS (1)
  1. BIMEKIZUMAB [Suspect]
     Active Substance: BIMEKIZUMAB
     Indication: Psoriatic arthropathy
     Dosage: UNK

REACTIONS (3)
  - Psoriatic arthropathy [Unknown]
  - Product prescribing issue [Unknown]
  - Product dose omission issue [Unknown]
